FAERS Safety Report 11130912 (Version 1)
Quarter: 2015Q2

REPORT INFORMATION
  Report Type: Spontaneous
  Country: US (occurrence: US)
  Receive Date: 20150522
  Receipt Date: 20150522
  Transmission Date: 20150821
  Serious: Yes (Other)
  Sender: FDA-Public Use
  Company Number: US-TEVA-564597USA

PATIENT
  Sex: Female

DRUGS (2)
  1. TOPROLOL [Concomitant]
  2. AMLODIPINE/VALSARTAN/HYDROCHLOROTHIAZIDE [Suspect]
     Active Substance: AMLODIPINE\HYDROCHLOROTHIAZIDE\VALSARTAN
     Indication: HYPERTENSION
     Dosage: 5 MG/160 MG/12.5 MG
     Dates: start: 201502

REACTIONS (6)
  - Amnesia [Recovered/Resolved]
  - Drug ineffective [Unknown]
  - Malignant hypertension [Unknown]
  - Fatigue [Recovered/Resolved]
  - Hypertension [Unknown]
  - Product substitution issue [Unknown]

NARRATIVE: CASE EVENT DATE: 201505
